FAERS Safety Report 9777607 (Version 1)
Quarter: 2013Q4

REPORT INFORMATION
  Report Type: Other
  Country: US (occurrence: US)
  Receive Date: 20131222
  Receipt Date: 20131222
  Transmission Date: 20140711
  Serious: Yes (Other)
  Sender: FDA-Public Use
  Company Number: US-BRISTOL-MYERS SQUIBB COMPANY-19913375

PATIENT
  Age: 59 Year
  Sex: Female

DRUGS (3)
  1. IPILIMUMAB [Suspect]
     Indication: GLIOBLASTOMA
     Dosage: 2 DOSES.DOSE3 AT 10 MG/KG(OCT-12)?DOSE4 AT 3 MG/KG (JUN-13)?DOSE5 AT 3 MG/KG (JUN-13).
     Dates: start: 201207
  2. BEVACIZUMAB [Concomitant]
     Indication: GLIOBLASTOMA
     Dosage: LAST ON OCT-13.
  3. TEMOZOLOMIDE [Concomitant]
     Indication: GLIOBLASTOMA
     Dosage: 50MG/M2
     Dates: start: 201208

REACTIONS (7)
  - Convulsion [Unknown]
  - Diarrhoea [Unknown]
  - Asthenia [Unknown]
  - Acute febrile neutrophilic dermatosis [Unknown]
  - Rash [Unknown]
  - Adrenal insufficiency [Unknown]
  - Off label use [Unknown]
